FAERS Safety Report 25221169 (Version 1)
Quarter: 2025Q2

REPORT INFORMATION
  Report Type: Spontaneous
  Country: FR (occurrence: FR)
  Receive Date: 20250421
  Receipt Date: 20250421
  Transmission Date: 20250717
  Serious: Yes (Life-Threatening, Hospitalization)
  Sender: MERCK SHARP & DOHME LLC
  Company Number: FR-009507513-2275028

PATIENT
  Age: 42 Year
  Sex: Female

DRUGS (4)
  1. PEMBROLIZUMAB [Suspect]
     Active Substance: PEMBROLIZUMAB
     Indication: Triple negative breast cancer
     Dates: start: 20230915
  2. CYCLOPHOSPHAMIDE [Concomitant]
     Active Substance: CYCLOPHOSPHAMIDE
     Dates: start: 20231212
  3. CARBOPLATIN\PACLITAXEL [Concomitant]
     Active Substance: CARBOPLATIN\PACLITAXEL
     Dates: start: 20230915
  4. epirubicin- cyclophosphamide [Concomitant]
     Dates: start: 20231212

REACTIONS (2)
  - Immune thrombocytopenia [Recovered/Resolved]
  - Cell death [Unknown]

NARRATIVE: CASE EVENT DATE: 20230101
